FAERS Safety Report 16531962 (Version 1)
Quarter: 2019Q3

REPORT INFORMATION
  Report Type: Report from Study
  Country: PR (occurrence: PR)
  Receive Date: 20190704
  Receipt Date: 20190704
  Transmission Date: 20191004
  Serious: Yes (Other)
  Sender: FDA-Public Use
  Company Number: PR-AMGEN-USASL2019106611

PATIENT
  Age: 71 Year
  Sex: Female

DRUGS (1)
  1. ENBREL [Suspect]
     Active Substance: ETANERCEPT
     Indication: RHEUMATOID ARTHRITIS
     Dosage: 50 MILLIGRAM, QWK
     Route: 065

REACTIONS (5)
  - Depression [Unknown]
  - Pruritus [Not Recovered/Not Resolved]
  - Thrombosis [Unknown]
  - Pain in extremity [Unknown]
  - Alopecia [Unknown]
